FAERS Safety Report 7917787-3 (Version None)
Quarter: 2011Q4

REPORT INFORMATION
  Report Type: 
  Country: None (occurrence: None)
  Receive Date: 20111116
  Receipt Date: 20110110
  Transmission Date: 20120403
  Serious: No
  Sender: FDA-Public Use
  Company Number: US-MYLANLABS-2010S1023003

PATIENT
  Sex: Female

DRUGS (5)
  1. ASPIRIN [Concomitant]
  2. SYNTHROID [Concomitant]
     Indication: THYROID DISORDER
     Route: 048
  3. AMILORIDE HYDROCHLORIDE AND HYDROCHLOROTHIAZIDE [Suspect]
     Indication: BLOOD PRESSURE INCREASED
     Route: 048
     Dates: start: 20100701
  4. AMILORIDE HYDROCHLORIDE AND HYDROCHLOROTHIAZIDE [Suspect]
     Route: 048
     Dates: start: 20100701
  5. ACETAMINOPHEN [Concomitant]

REACTIONS (3)
  - DYSGEUSIA [None]
  - ABDOMINAL PAIN UPPER [None]
  - URINE OUTPUT DECREASED [None]
